FAERS Safety Report 6048092-0 (Version None)
Quarter: 2009Q1

REPORT INFORMATION
  Report Type: 
  Country: None (occurrence: None)
  Receive Date: 20090123
  Receipt Date: 20090112
  Transmission Date: 20090719
  Serious: Yes (Hospitalization)
  Sender: FDA-Public Use
  Company Number: PHHY2009AR01252

PATIENT
  Sex: Female

DRUGS (3)
  1. DIOVAN HCT [Suspect]
     Indication: HYPERTENSION
     Dosage: QD
     Dates: start: 20050805
  2. DIOVAN HCT [Suspect]
     Dosage: 1.5 TABLETS/DAY
  3. GALVUS [Suspect]
     Indication: DIABETES MELLITUS
     Dosage: UNK
     Dates: start: 20081001, end: 20081201

REACTIONS (4)
  - ABDOMINAL PAIN UPPER [None]
  - BLOOD PRESSURE INCREASED [None]
  - HYPERGLYCAEMIA [None]
  - OEDEMA PERIPHERAL [None]
